FAERS Safety Report 5972662-9 (Version None)
Quarter: 2008Q4

REPORT INFORMATION
  Report Type: 
  Country: None (occurrence: None)
  Receive Date: 20081201
  Receipt Date: 20081117
  Transmission Date: 20090506
  Serious: Yes (Other)
  Sender: FDA-Public Use
  Company Number: AR-NOVOPROD-279215

PATIENT
  Age: 38 Year
  Sex: Female

DRUGS (4)
  1. LEVEMIR [Suspect]
     Indication: DRUG USE FOR UNKNOWN INDICATION
     Dosage: 29 IU, QD
     Route: 058
     Dates: start: 20070101, end: 20071205
  2. INSULATARD [Suspect]
     Indication: DRUG USE FOR UNKNOWN INDICATION
     Dosage: 25 IU, QD
     Route: 058
  3. NOVORAPID [Suspect]
     Indication: DRUG USE FOR UNKNOWN INDICATION
     Dosage: 10 IU, QD
     Route: 058
     Dates: start: 20070101, end: 20080101
  4. LEVOTIROXINA [Concomitant]
     Dosage: 100 MG, QD
     Route: 048

REACTIONS (2)
  - CAESAREAN SECTION [None]
  - INTRA-UTERINE DEATH [None]
